FAERS Safety Report 7375501-7 (Version None)
Quarter: 2011Q1

REPORT INFORMATION
  Report Type: 
  Country: None (occurrence: None)
  Receive Date: 20110325
  Receipt Date: 20110318
  Transmission Date: 20110831
  Serious: Yes (Hospitalization)
  Sender: FDA-Public Use
  Company Number: FR-SANOFI-AVENTIS-2011SA016972

PATIENT
  Age: 63 Year
  Sex: Female
  Weight: 78 kg

DRUGS (4)
  1. TAXOTERE [Suspect]
     Indication: BREAST CANCER
     Dates: start: 20110111, end: 20110111
  2. VALSARTAN/HYDROCHLOROTHIAZIDE [Concomitant]
     Indication: HYPERTENSION
  3. HYPERIUM [Concomitant]
     Indication: HYPERTENSION
     Route: 048
  4. HYPERIUM [Concomitant]
     Route: 048

REACTIONS (5)
  - SKIN OEDEMA [None]
  - URINARY INCONTINENCE [None]
  - CONFUSIONAL STATE [None]
  - RASH [None]
  - PURPURA [None]
